FAERS Safety Report 4896281-0 (Version None)
Quarter: 2006Q1

REPORT INFORMATION
  Report Type: 
  Country: None (occurrence: None)
  Receive Date: 20060126
  Receipt Date: 20060116
  Transmission Date: 20060701
  Serious: Yes (Disabling, Other)
  Sender: FDA-Public Use
  Company Number: 2006008425

PATIENT
  Age: 78 Year
  Sex: Male
  Weight: 77.1115 kg

DRUGS (17)
  1. NEURONTIN [Suspect]
     Indication: PAIN IN EXTREMITY
     Dosage: (4 IN 1 D)
     Dates: start: 20040801, end: 20060101
  2. LYRICA [Concomitant]
     Indication: PAIN IN EXTREMITY
     Dosage: 100 MG (50 MG, 2 IN 1 D), ORAL
     Route: 048
     Dates: start: 20060101
  3. LASIX [Concomitant]
  4. DIGOXIN [Concomitant]
  5. PERCOCET (OXYCODONE HYDROCHLORIDE, PRACETAMOL) [Concomitant]
  6. ASPIRIN [Concomitant]
  7. ROSIGLITAZONE (ROSIGLITAZONE) [Concomitant]
  8. CENTRUM (MINERALS NOS, VITAMINS NOS) [Concomitant]
  9. OMEPRAZOLE [Concomitant]
  10. CYMBALTA [Concomitant]
  11. GLYBURIDE [Concomitant]
  12. COREG [Concomitant]
  13. VALSARTAN [Concomitant]
  14. METHOCARBAMOL [Concomitant]
  15. K-DUR 10 [Concomitant]
  16. IBUPROFEN [Concomitant]
  17. ZOCOR [Concomitant]

REACTIONS (7)
  - ABDOMINAL PAIN UPPER [None]
  - FALL [None]
  - FEAR [None]
  - HALLUCINATION [None]
  - MALAISE [None]
  - NAUSEA [None]
  - VOMITING [None]
